FAERS Safety Report 8302554-1 (Version None)
Quarter: 2012Q2

REPORT INFORMATION
  Report Type: 
  Country: None (occurrence: None)
  Receive Date: 20120420
  Receipt Date: 20120410
  Transmission Date: 20120825
  Serious: Yes (Other)
  Sender: FDA-Public Use
  Company Number: TH-ROCHE-1058559

PATIENT
  Age: 62 Year
  Sex: Male

DRUGS (2)
  1. MABTHERA [Suspect]
     Route: 042
  2. MABTHERA [Suspect]
     Indication: LYMPHOMA
     Route: 042

REACTIONS (1)
  - HUMAN ANTI-MOUSE ANTIBODY POSITIVE [None]
